FAERS Safety Report 6168485-0 (Version None)
Quarter: 2009Q2

REPORT INFORMATION
  Report Type: 
  Country: None (occurrence: None)
  Receive Date: 20090427
  Receipt Date: 20090417
  Transmission Date: 20091009
  Serious: Yes (Death, Hospitalization)
  Sender: FDA-Public Use
  Company Number: A0780191A

PATIENT
  Age: 67 Year
  Sex: Male

DRUGS (12)
  1. AVANDIA [Suspect]
     Indication: DIABETES MELLITUS
     Dosage: 4MG PER DAY
     Route: 048
     Dates: start: 20031219, end: 20070801
  2. ACTOS [Concomitant]
  3. METFORMIN HCL [Concomitant]
  4. DIABETA [Concomitant]
  5. GLUCOTROL [Concomitant]
  6. NEXIUM [Concomitant]
  7. PROTONIX [Concomitant]
  8. WARFARIN SODIUM [Concomitant]
  9. DIGOXIN [Concomitant]
  10. FERREX [Concomitant]
  11. NORVASC [Concomitant]
  12. HECTOROL [Concomitant]

REACTIONS (1)
  - CARDIAC FAILURE CONGESTIVE [None]
